FAERS Safety Report 21575231 (Version 2)
Quarter: 2022Q4

REPORT INFORMATION
  Report Type: Spontaneous
  Country: US (occurrence: US)
  Receive Date: 20221110
  Receipt Date: 20221208
  Transmission Date: 20230113
  Serious: No
  Sender: FDA-Public Use
  Company Number: US-CSLP-16203125847-V11877967-25

PATIENT
  Age: 44 Year
  Sex: Female

DRUGS (3)
  1. ANTICOAGULANT SODIUM CITRATE [Suspect]
     Active Substance: SODIUM CITRATE
     Indication: Anticoagulant therapy
     Route: 050
     Dates: start: 20221109, end: 20221109
  2. VITAMIN D NOS [Concomitant]
     Active Substance: VITAMIN D NOS
     Indication: Product used for unknown indication
  3. LOSARTAN [Concomitant]
     Active Substance: LOSARTAN
     Indication: Hypertension

REACTIONS (13)
  - Discomfort [Recovered/Resolved]
  - Tenderness [Recovered/Resolved]
  - Confusional state [Recovered/Resolved]
  - Hypoaesthesia [Recovered/Resolved]
  - Thirst [Recovered/Resolved]
  - Movement disorder [Recovered/Resolved]
  - Paraesthesia [Recovered/Resolved]
  - Vision blurred [Recovered/Resolved]
  - Feeling hot [Recovered/Resolved]
  - Dizziness [Recovered/Resolved]
  - Hypoaesthesia oral [Recovered/Resolved]
  - Paraesthesia oral [Recovered/Resolved]
  - Muscle tightness [Recovered/Resolved]

NARRATIVE: CASE EVENT DATE: 20221109
